FAERS Safety Report 14273446 (Version 1)
Quarter: 2017Q4

REPORT INFORMATION
  Report Type: Spontaneous
  Country: KR (occurrence: KR)
  Receive Date: 20171212
  Receipt Date: 20171212
  Transmission Date: 20180321
  Serious: Yes (Other)
  Sender: FDA-Public Use
  Company Number: PHHY2017KR176251

PATIENT
  Age: 11 Year
  Sex: Female

DRUGS (1)
  1. METHYLPREDNISOLONE. [Suspect]
     Active Substance: METHYLPREDNISOLONE
     Indication: CROHN^S DISEASE
     Dosage: 1 MG/KG, QD
     Route: 042

REACTIONS (4)
  - Stomatitis necrotising [Recovering/Resolving]
  - Concomitant disease aggravated [Recovering/Resolving]
  - Product use in unapproved indication [Unknown]
  - Lip ulceration [Recovering/Resolving]
